FAERS Safety Report 8244029-4 (Version None)
Quarter: 2012Q1

REPORT INFORMATION
  Report Type: 
  Country: None (occurrence: None)
  Receive Date: 20120309
  Receipt Date: 20101109
  Transmission Date: 20120608
  Serious: Yes (Hospitalization)
  Sender: FDA-Public Use
  Company Number: PHHY2010US34330

PATIENT
  Age: 56 Year
  Sex: Female

DRUGS (6)
  1. MULTIVITAMINS (ASCORBIC ACID, ERGOCALCIFEROL, FOLIC ACID, ICOTINAMIDE, [Concomitant]
  2. VITAMIN B12 [Concomitant]
  3. EXTAVIA [Suspect]
     Indication: MULTIPLE SCLEROSIS
     Dosage: 0.625 MG, QOD,; 0.3 MG QOD, SUBCUTANEOUS; ONCE A WEEK, QOD, SUBCUTANEOUS
     Route: 058
     Dates: start: 20100522
  4. EXTAVIA [Suspect]
     Indication: MULTIPLE SCLEROSIS
     Dosage: 0.625 MG, QOD,; 0.3 MG QOD, SUBCUTANEOUS; ONCE A WEEK, QOD, SUBCUTANEOUS
     Route: 058
     Dates: start: 20100504
  5. HYDROCHLOROTHIAZIDE [Concomitant]
  6. HYDROCHLOROTHIAZIDE [Concomitant]

REACTIONS (14)
  - NAUSEA [None]
  - ABASIA [None]
  - VOMITING [None]
  - FATIGUE [None]
  - MULTIPLE SCLEROSIS RELAPSE [None]
  - SENSATION OF HEAVINESS [None]
  - VERTIGO [None]
  - MOVEMENT DISORDER [None]
  - MUSCULOSKELETAL STIFFNESS [None]
  - BALANCE DISORDER [None]
  - HYPERHIDROSIS [None]
  - MUSCULAR WEAKNESS [None]
  - DIZZINESS [None]
  - LIMB DISCOMFORT [None]
